FAERS Safety Report 20684460 (Version 7)
Quarter: 2024Q1

REPORT INFORMATION
  Report Type: Spontaneous
  Country: US (occurrence: US)
  Receive Date: 20220407
  Receipt Date: 20240305
  Transmission Date: 20240409
  Serious: Yes (Hospitalization, Other)
  Sender: FDA-Public Use
  Company Number: US-PFIZER INC-202101767840

PATIENT
  Age: 82 Year
  Sex: Female
  Weight: 95.25 kg

DRUGS (8)
  1. IBRANCE [Suspect]
     Active Substance: PALBOCICLIB
     Indication: Breast cancer female
     Dosage: 125 MG, CYCLIC (ONE TABLET DAILY FOR 21 DAYS, THEN 7 DAYS OFF)
     Dates: start: 201802
  2. IBRANCE [Suspect]
     Active Substance: PALBOCICLIB
     Dosage: 125 MG, 1X/DAY (ONCE A DAY, 21 DAYS)
     Dates: start: 20230124
  3. MELOXICAM [Concomitant]
     Active Substance: MELOXICAM
     Indication: Chondropathy
     Dosage: 50 MG, 1X/DAY (50MG ONCE DAILY)
  4. MELOXICAM [Concomitant]
     Active Substance: MELOXICAM
     Indication: Arthritis
  5. MELOXICAM [Concomitant]
     Active Substance: MELOXICAM
     Indication: Breast cancer female
  6. LOSARTAN [Concomitant]
     Active Substance: LOSARTAN
     Indication: Blood pressure measurement
     Dosage: 100 MG, 1X/DAY (100MG TABLET ONCE DAILY)
  7. LOSARTAN [Concomitant]
     Active Substance: LOSARTAN
     Indication: Breast cancer female
  8. LETROZOLE [Concomitant]
     Active Substance: LETROZOLE
     Indication: Breast cancer
     Dosage: UNK

REACTIONS (11)
  - Rhinorrhoea [Not Recovered/Not Resolved]
  - Depressed level of consciousness [Unknown]
  - Lumbar vertebral fracture [Unknown]
  - Fall [Unknown]
  - Sneezing [Not Recovered/Not Resolved]
  - Body height decreased [Unknown]
  - Pain [Not Recovered/Not Resolved]
  - Seasonal allergy [Unknown]
  - Arthralgia [Unknown]
  - Back pain [Unknown]
  - Nasopharyngitis [Not Recovered/Not Resolved]

NARRATIVE: CASE EVENT DATE: 20211208
